FAERS Safety Report 18650849 (Version 2)
Quarter: 2021Q1

REPORT INFORMATION
  Report Type: Report from Study
  Country: CA (occurrence: CA)
  Receive Date: 20201222
  Receipt Date: 20210205
  Transmission Date: 20210419
  Serious: Yes (Other)
  Sender: FDA-Public Use
  Company Number: CA-JNJFOC-20201226196

PATIENT
  Age: 70 Year
  Sex: Female

DRUGS (8)
  1. VITAMIN D [ERGOCALCIFEROL] [Concomitant]
     Active Substance: ERGOCALCIFEROL
  2. THYRONINE [Concomitant]
  3. ESTRADIOL. [Concomitant]
     Active Substance: ESTRADIOL
  4. SPRAVATO [Suspect]
     Active Substance: ESKETAMINE
     Indication: MAJOR DEPRESSION
     Dosage: 3RD DOSE HELD
     Dates: start: 20201203, end: 202012
  5. FLUVOXAMINE [Concomitant]
     Active Substance: FLUVOXAMINE
  6. MULTIPLE VITAMIN [Concomitant]
     Active Substance: VITAMINS
  7. PROGESTERONE. [Concomitant]
     Active Substance: PROGESTERONE
  8. TEMAZEPAM. [Concomitant]
     Active Substance: TEMAZEPAM

REACTIONS (1)
  - Blood pressure systolic increased [Unknown]

NARRATIVE: CASE EVENT DATE: 20201210
